FAERS Safety Report 17655532 (Version 5)
Quarter: 2021Q4

REPORT INFORMATION
  Report Type: Spontaneous
  Country: US (occurrence: US)
  Receive Date: 20200410
  Receipt Date: 20211122
  Transmission Date: 20220303
  Serious: Yes (Hospitalization)
  Sender: FDA-Public Use
  Company Number: US-PFIZER INC-2020148097

PATIENT
  Age: 55 Year
  Sex: Male

DRUGS (6)
  1. LYRICA [Suspect]
     Active Substance: PREGABALIN
     Indication: Intervertebral disc displacement
     Dosage: 300 MG, TWICE A DAY
     Route: 048
  2. LYRICA [Suspect]
     Active Substance: PREGABALIN
     Indication: Pain
     Dosage: 300 MG, THREE TIMES A DAY (TAKE 1 CAPSULE BY MOUTH EVERY 8 HOURS (Q8H))
     Route: 048
  3. LYRICA [Suspect]
     Active Substance: PREGABALIN
     Dosage: 75 MG, TWICE A DAY
     Route: 048
  4. LYRICA [Suspect]
     Active Substance: PREGABALIN
     Dosage: 150 MG, TWICE A DAY
     Route: 048
  5. LYRICA [Suspect]
     Active Substance: PREGABALIN
     Dosage: 225 MG, TWICE A DAY
     Route: 048
  6. LYRICA [Suspect]
     Active Substance: PREGABALIN
     Dosage: 300 MG, THREE TIMES A DAY (TAKE 1 CAPSULE BY MOUTH EVERY 8 HOURS (Q8H))
     Route: 048

REACTIONS (3)
  - COVID-19 [Unknown]
  - Prescribed overdose [Unknown]
  - Hypoaesthesia [Unknown]
